FAERS Safety Report 15789979 (Version 1)
Quarter: 2019Q1

REPORT INFORMATION
  Report Type: Spontaneous
  Country: US (occurrence: US)
  Receive Date: 20190104
  Receipt Date: 20190104
  Transmission Date: 20190417
  Serious: No
  Sender: FDA-Public Use
  Company Number: US-PFIZER INC-2019001298

PATIENT
  Age: 82 Year

DRUGS (10)
  1. MOTRIN [Suspect]
     Active Substance: IBUPROFEN
     Dosage: UNK
  2. ILOSONE [Suspect]
     Active Substance: ERYTHROMYCIN ESTOLATE
     Dosage: UNK
  3. NALFON [Suspect]
     Active Substance: FENOPROFEN CALCIUM
     Dosage: UNK
  4. BUTAZOLIDIN [Suspect]
     Active Substance: PHENYLBUTAZONE
     Dosage: UNK
  5. TETRACYCLINE HCL [Suspect]
     Active Substance: TETRACYCLINE HYDROCHLORIDE
     Dosage: UNK
  6. ADVIL COLD AND SINUS [Suspect]
     Active Substance: IBUPROFEN\PSEUDOEPHEDRINE HYDROCHLORIDE
     Dosage: UNK
  7. NYSTATIN/TRIAMCINOLONE [Suspect]
     Active Substance: NYSTATIN\TRIAMCINOLONE
     Dosage: UNK
  8. LIDOCAINE HCL [Suspect]
     Active Substance: LIDOCAINE HYDROCHLORIDE
     Dosage: UNK
  9. ZESTRIL [Suspect]
     Active Substance: LISINOPRIL
     Dosage: UNK
  10. ZUCAPSAICIN [Suspect]
     Active Substance: ZUCAPSAICIN
     Dosage: UNK

REACTIONS (1)
  - Drug hypersensitivity [Unknown]
